FAERS Safety Report 24727013 (Version 1)
Quarter: 2024Q4

REPORT INFORMATION
  Report Type: Spontaneous
  Country: US (occurrence: None)
  Receive Date: 20241212
  Receipt Date: 20241212
  Transmission Date: 20250114
  Serious: Yes (Hospitalization)
  Sender: Public
  Company Number: None

PATIENT
  Sex: Male

DRUGS (11)
  1. MYCOPHENOLIC ACID [Suspect]
     Active Substance: MYCOPHENOLIC ACID
     Indication: Renal transplant
     Dosage: FREQUENCY : TWICE A DAY;?
     Route: 048
     Dates: start: 20230407
  2. ACTOS [Concomitant]
     Active Substance: PIOGLITAZONE HYDROCHLORIDE
  3. ASPIRIN LOW EC [Concomitant]
  4. D2000 ULTRA STRENGTH [Concomitant]
  5. LISINOPRIL [Concomitant]
     Active Substance: LISINOPRIL
  6. NOVOLOG [Concomitant]
     Active Substance: INSULIN ASPART
  7. PIOGLITAZONE [Concomitant]
     Active Substance: PIOGLITAZONE
  8. SANTYL OIN [Concomitant]
  9. SODIUM BICAR [Concomitant]
  10. TACROLIMUS [Concomitant]
     Active Substance: TACROLIMUS
  11. TACROLIMUS [Concomitant]
     Active Substance: TACROLIMUS

REACTIONS (1)
  - Clostridium difficile infection [None]
